FAERS Safety Report 5923720-6 (Version None)
Quarter: 2008Q4

REPORT INFORMATION
  Report Type: 
  Country: None (occurrence: None)
  Receive Date: 20081020
  Receipt Date: 20081010
  Transmission Date: 20090506
  Serious: Yes (Hospitalization)
  Sender: FDA-Public Use
  Company Number: B0537336A

PATIENT
  Age: 71 Year
  Sex: Male

DRUGS (6)
  1. AVODART [Suspect]
     Dosage: .5MG PER DAY
     Route: 048
     Dates: start: 20080603, end: 20080617
  2. ZOCOR [Concomitant]
  3. PRAVASTATIN [Concomitant]
     Route: 048
     Dates: start: 20010101
  4. BUFLOMEDIL [Concomitant]
     Route: 048
     Dates: start: 20000101
  5. TADENAN [Concomitant]
     Route: 048
     Dates: start: 20020101, end: 20080601
  6. TAMSULOSINE [Concomitant]
     Dosage: .4MG PER DAY
     Dates: start: 20080601

REACTIONS (4)
  - DYSURIA [None]
  - PELVIC PAIN [None]
  - PENILE PAIN [None]
  - URINARY RETENTION [None]
